FAERS Safety Report 7729844-5 (Version None)
Quarter: 2011Q3

REPORT INFORMATION
  Report Type: 
  Country: None (occurrence: None)
  Receive Date: 20110906
  Receipt Date: 20110824
  Transmission Date: 20111222
  Serious: Yes (Hospitalization)
  Sender: FDA-Public Use
  Company Number: US-CELGENEUS-163-AB007-11061397

PATIENT
  Sex: Male
  Weight: 109 kg

DRUGS (22)
  1. GEMZAR [Suspect]
     Dosage: 1000 MILLIGRAM/SQ. METER
     Route: 041
     Dates: start: 20110414, end: 20110524
  2. VITAMIN D [Concomitant]
     Indication: VITAMIN SUPPLEMENTATION
     Route: 048
     Dates: start: 20090101
  3. SODIUM CHLORIDE [Concomitant]
     Indication: DEHYDRATION
     Route: 041
     Dates: start: 20110531
  4. ABRAXANE [Suspect]
     Dosage: 125 MILLIGRAM/SQ. METER
     Route: 041
     Dates: start: 20110414, end: 20110524
  5. DURAGESIC-100 [Concomitant]
     Indication: PROPHYLAXIS
     Route: 061
     Dates: start: 20110428
  6. SODIUM CHLORIDE [Concomitant]
     Route: 041
     Dates: start: 20110520, end: 20110520
  7. DECADRON [Concomitant]
     Indication: PROPHYLAXIS
     Route: 041
     Dates: start: 20110414
  8. COLACE [Concomitant]
     Indication: CONSTIPATION
     Route: 048
     Dates: start: 20110314
  9. SIMETHICONE [Concomitant]
     Indication: PROPHYLAXIS
     Route: 048
     Dates: start: 20110314
  10. DURAGESIC-100 [Concomitant]
     Route: 061
     Dates: start: 20110406
  11. CIPROFLOXACIN [Concomitant]
     Indication: URINARY TRACT INFECTION
     Route: 048
     Dates: start: 20110510, end: 20110517
  12. PHENERGAN HCL [Concomitant]
     Indication: PROPHYLAXIS
     Route: 048
     Dates: start: 20110314
  13. CIPROFLOXACIN [Concomitant]
     Indication: INFECTION PROPHYLAXIS
     Route: 048
     Dates: start: 20110520, end: 20110527
  14. DEMEROL [Concomitant]
     Route: 041
     Dates: start: 20110601, end: 20110601
  15. OXYCODONE HCL [Concomitant]
     Indication: PROPHYLAXIS
     Route: 048
     Dates: start: 20110406
  16. LEVEMIR [Concomitant]
     Route: 058
     Dates: start: 20110320
  17. ONDANSETRON [Concomitant]
     Indication: PROPHYLAXIS
     Route: 048
     Dates: start: 20110320
  18. VERSED [Concomitant]
     Route: 041
     Dates: start: 20110601, end: 20110601
  19. ASPIRIN [Concomitant]
     Indication: PROPHYLAXIS
     Route: 048
     Dates: start: 20050101
  20. NOVOLOG [Concomitant]
     Route: 058
     Dates: start: 20110316
  21. ALOXI [Concomitant]
     Indication: PROPHYLAXIS
     Route: 041
     Dates: start: 20110414
  22. KLONOPIN [Concomitant]
     Indication: PROPHYLAXIS
     Route: 048
     Dates: start: 20090101

REACTIONS (2)
  - UPPER GASTROINTESTINAL HAEMORRHAGE [None]
  - DEHYDRATION [None]
